FAERS Safety Report 5775840-7 (Version None)
Quarter: 2008Q2

REPORT INFORMATION
  Report Type: 
  Country: None (occurrence: None)
  Receive Date: 20080617
  Receipt Date: 20080609
  Transmission Date: 20081010
  Serious: Yes (Hospitalization)
  Sender: FDA-Public Use
  Company Number: CA-ASTRAZENECA-2008UW11571

PATIENT
  Age: 80 Year
  Sex: Male

DRUGS (1)
  1. SEROQUEL [Suspect]
     Indication: DELUSION
     Route: 048
     Dates: start: 20080101, end: 20080201

REACTIONS (2)
  - PNEUMONIA ASPIRATION [None]
  - SPEECH DISORDER [None]
